FAERS Safety Report 9249290 (Version 1)
Quarter: 2013Q2

REPORT INFORMATION
  Report Type: Spontaneous
  Country: GB (occurrence: GB)
  Receive Date: 20130423
  Receipt Date: 20130423
  Transmission Date: 20140414
  Serious: Yes (Hospitalization, Other)
  Sender: FDA-Public Use
  Company Number: GB-TEVA-397964ISR

PATIENT
  Age: 46 Year
  Sex: Female

DRUGS (10)
  1. METRONIDAZOLE [Suspect]
     Dosage: 1500 MILLIGRAM DAILY;
     Route: 042
     Dates: start: 20130402, end: 20130403
  2. METRONIDAZOLE [Interacting]
     Route: 048
  3. CARBAMAZEPINE [Interacting]
     Indication: GRAND MAL CONVULSION
     Dosage: 1000 MILLIGRAM DAILY; 600MG ONCE IN THE MORNING AND 400MG ONCE AT NIGHT
     Route: 048
  4. CEFTRIAXONE [Concomitant]
     Dosage: 2 GRAM DAILY;
     Route: 040
     Dates: start: 20130403
  5. DOXYCYCLINE [Concomitant]
     Dosage: 200 MILLIGRAM DAILY;
     Route: 048
     Dates: start: 20130403
  6. PARACETAMOL [Concomitant]
     Dosage: 4 GRAM DAILY;
     Route: 048
  7. CODEINE [Concomitant]
     Dosage: WHEN REQUIRED
     Route: 048
  8. CEFUROXIME [Concomitant]
     Dosage: 4.5 GRAM DAILY;
     Route: 042
     Dates: start: 20130402, end: 20130403
  9. MORPHINE SULPHATE [Concomitant]
     Route: 048
     Dates: start: 20130403
  10. GENTAMICIN [Concomitant]
     Dosage: IMMEDIATE DOSE
     Route: 042
     Dates: start: 20130403, end: 20130403

REACTIONS (6)
  - Confusional state [Not Recovered/Not Resolved]
  - Dizziness [Not Recovered/Not Resolved]
  - Diplopia [Not Recovered/Not Resolved]
  - Anticonvulsant drug level increased [Unknown]
  - Drug interaction [Unknown]
  - Toxicity to various agents [Unknown]
